FAERS Safety Report 6254991-7 (Version None)
Quarter: 2009Q3

REPORT INFORMATION
  Report Type: 
  Country: None (occurrence: None)
  Receive Date: 20090702
  Receipt Date: 20090624
  Transmission Date: 20100115
  Serious: Yes (Other)
  Sender: FDA-Public Use
  Company Number: IE-MERCK-0906GBR00098

PATIENT
  Age: 58 Year
  Sex: Male

DRUGS (3)
  1. ZETIA [Suspect]
     Indication: LIPIDS INCREASED
     Route: 048
  2. ASPIRIN [Concomitant]
     Route: 065
  3. METFORMIN HYDROCHLORIDE [Concomitant]
     Route: 065

REACTIONS (2)
  - BLOOD CREATINE PHOSPHOKINASE INCREASED [None]
  - MYALGIA [None]
